FAERS Safety Report 9990218 (Version 1)
Quarter: 2014Q1

REPORT INFORMATION
  Report Type: Report from Study
  Country: US (occurrence: US)
  Receive Date: 20140310
  Receipt Date: 20140310
  Transmission Date: 20141002
  Serious: No
  Sender: FDA-Public Use
  Company Number: US-ABBVIE-13P-163-1136980-00

PATIENT
  Age: 38 Year
  Sex: Female

DRUGS (4)
  1. HUMIRA [Suspect]
     Indication: ANKYLOSING SPONDYLITIS
  2. INDOCIN [Concomitant]
     Indication: ANKYLOSING SPONDYLITIS
  3. PROTONIX [Concomitant]
     Indication: GASTRIC DISORDER
  4. SEASONIQUE [Concomitant]
     Indication: CONTRACEPTION

REACTIONS (2)
  - Incorrect dose administered [Not Recovered/Not Resolved]
  - Injection site haemorrhage [Not Recovered/Not Resolved]
